FAERS Safety Report 5100604-7 (Version None)
Quarter: 2006Q3

REPORT INFORMATION
  Report Type: 
  Country: None (occurrence: None)
  Receive Date: 20060907
  Receipt Date: 20060907
  Transmission Date: 20061208
  Serious: Yes (Life-Threatening, Other)
  Sender: FDA-Public Use
  Company Number: None

PATIENT
  Age: 37 Year
  Sex: Female
  Weight: 61.6892 kg

DRUGS (1)
  1. EFFEXOR XR [Suspect]
     Indication: DEPRESSION
     Dosage: 75 MG   Q 24   PO
     Route: 048
     Dates: start: 20050501, end: 20060906

REACTIONS (8)
  - CRYING [None]
  - EMOTIONAL DISORDER [None]
  - FATIGUE [None]
  - PERSONALITY CHANGE [None]
  - SEXUAL DYSFUNCTION [None]
  - SUICIDAL IDEATION [None]
  - THERAPY CESSATION [None]
  - THINKING ABNORMAL [None]
